FAERS Safety Report 24357671 (Version 1)
Quarter: 2024Q3

REPORT INFORMATION
  Report Type: Spontaneous
  Country: US (occurrence: None)
  Receive Date: 20240924
  Receipt Date: 20240924
  Transmission Date: 20241017
  Serious: Yes (Other)
  Sender: Public
  Company Number: None

PATIENT
  Age: 28 Year
  Sex: Female

DRUGS (2)
  1. LITHIUM [Suspect]
     Active Substance: LITHIUM
  2. CAPLYTA [Suspect]
     Active Substance: LUMATEPERONE

REACTIONS (4)
  - Weight increased [None]
  - Alopecia [None]
  - Skin wrinkling [None]
  - Vaginal disorder [None]

NARRATIVE: CASE EVENT DATE: 20220201
